FAERS Safety Report 7565631-9 (Version None)
Quarter: 2011Q2

REPORT INFORMATION
  Report Type: 
  Country: None (occurrence: None)
  Receive Date: 20110616
  Receipt Date: 20110615
  Transmission Date: 20111010
  Serious: Yes (Other)
  Sender: FDA-Public Use
  Company Number: 1022556-2011-00009

PATIENT
  Age: 64 Year
  Sex: Male
  Weight: 99.7913 kg

DRUGS (1)
  1. ICY HOT NO MESS APPLICATOR 2.5 OZ. [Suspect]
     Indication: MYALGIA
     Dosage: TOPICAL; ONCE
     Route: 061

REACTIONS (5)
  - SCAB [None]
  - RASH [None]
  - CHEMICAL INJURY [None]
  - BLISTER [None]
  - HYPERTROPHIC SCAR [None]
